FAERS Safety Report 8875425 (Version 1)
Quarter: 2012Q4

REPORT INFORMATION
  Report Type: 
  Country: ZA (occurrence: ZA)
  Receive Date: 20121029
  Receipt Date: 20121029
  Transmission Date: 20130627
  Serious: Yes (Other)
  Sender: FDA-Public Use
  Company Number: ZA-PFIZER INC-2012268805

PATIENT
  Age: 40 Year
  Sex: Female

DRUGS (3)
  1. CHAMPIX [Suspect]
     Indication: SMOKING CESSATION THERAPY
     Dosage: 1 mg, 2x/day
     Route: 048
     Dates: start: 201210
  2. KESSAR [Concomitant]
     Indication: BREAST CANCER
     Dosage: UNK
  3. PROVERA [Concomitant]
     Dosage: UNK
     Route: 048

REACTIONS (2)
  - Candidiasis [Not Recovered/Not Resolved]
  - Hot flush [Not Recovered/Not Resolved]
